FAERS Safety Report 8834345 (Version 1)
Quarter: 2012Q4

REPORT INFORMATION
  Report Type: 
  Country: US (occurrence: US)
  Receive Date: 20121010
  Receipt Date: 20121010
  Transmission Date: 20130627
  Serious: No
  Sender: FDA-Public Use
  Company Number: US-PFIZER INC-2012247764

PATIENT
  Age: 55 Year
  Sex: Female
  Weight: 64.4 kg

DRUGS (3)
  1. ADVIL [Suspect]
     Indication: HEADACHE
     Dosage: 2-4 capsules a day, as needed
     Route: 048
     Dates: end: 201210
  2. ADVIL [Suspect]
     Indication: MIGRAINE
  3. ADVIL [Suspect]
     Indication: PAIN IN EXTREMITY

REACTIONS (2)
  - Malaise [Not Recovered/Not Resolved]
  - Muscle spasms [Not Recovered/Not Resolved]
